FAERS Safety Report 4677494-X (Version None)
Quarter: 2005Q2

REPORT INFORMATION
  Report Type: 
  Country: None (occurrence: None)
  Receive Date: 20050531
  Receipt Date: 20050519
  Transmission Date: 20051028
  Serious: Yes (Other)
  Sender: FDA-Public Use
  Company Number: US-BRISTOL-MYERS SQUIBB COMPANY-12978201

PATIENT
  Age: 44 Year
  Sex: Male

DRUGS (1)
  1. SERZONE [Suspect]
     Indication: DEPRESSION
     Route: 048
     Dates: start: 20010101

REACTIONS (2)
  - HEPATITIS C [None]
  - LIVER DISORDER [None]
